FAERS Safety Report 22285482 (Version 1)
Quarter: 2023Q2

REPORT INFORMATION
  Report Type: Report from Study
  Country: CA (occurrence: CA)
  Receive Date: 20230504
  Receipt Date: 20230504
  Transmission Date: 20230722
  Serious: Yes (Other)
  Sender: FDA-Public Use
  Company Number: CA-BAUSCH-BL-2020-006975

PATIENT
  Age: 63 Year
  Sex: Male

DRUGS (5)
  1. SILIQ [Suspect]
     Active Substance: BRODALUMAB
     Indication: Psoriasis
     Dosage: 210 MG/ 1.5 ML, SECOND AND THIRD DOSE ON /MAR/2020
     Route: 058
     Dates: start: 20200226, end: 202003
  2. SILIQ [Suspect]
     Active Substance: BRODALUMAB
     Indication: Arthritis
     Dosage: 210 MG/ 1.5 ML
     Route: 058
     Dates: start: 2020
  3. SILIQ [Suspect]
     Active Substance: BRODALUMAB
     Dosage: 210 MG/ 1.5 ML, Q 2 WEEKS
     Route: 058
     Dates: start: 2023
  4. INSULIN NOS [Concomitant]
     Active Substance: INSULIN NOS
     Indication: Type 2 diabetes mellitus
     Route: 065
  5. CRESTOR [Concomitant]
     Active Substance: ROSUVASTATIN CALCIUM
     Indication: Blood cholesterol increased
     Route: 065

REACTIONS (7)
  - Hip arthroplasty [Unknown]
  - Post procedural complication [Unknown]
  - Localised infection [Recovering/Resolving]
  - Oedema peripheral [Recovering/Resolving]
  - Cellulitis [Unknown]
  - Arthralgia [Unknown]
  - Drug ineffective for unapproved indication [Unknown]

NARRATIVE: CASE EVENT DATE: 20200101
